FAERS Safety Report 19259493 (Version 3)
Quarter: 2021Q2

REPORT INFORMATION
  Report Type: Spontaneous
  Country: IN (occurrence: IN)
  Receive Date: 20210514
  Receipt Date: 20210602
  Transmission Date: 20210717
  Serious: Yes (Death, Hospitalization, Other)
  Sender: FDA-Public Use
  Company Number: IN-PFIZER INC-2021207589

PATIENT
  Age: 74 Year
  Sex: Female

DRUGS (3)
  1. FULVESTRANT. [Concomitant]
     Active Substance: FULVESTRANT
     Dosage: UNK
     Dates: start: 20200905
  2. PALBACE [Suspect]
     Active Substance: PALBOCICLIB
     Dosage: 125 MG, 1X/DAY
     Route: 048
     Dates: start: 2021, end: 20210517
  3. PALBACE [Suspect]
     Active Substance: PALBOCICLIB
     Indication: BREAST CANCER METASTATIC
     Dosage: 125 MG, 1X/DAY
     Route: 048
     Dates: start: 20201009, end: 2021

REACTIONS (11)
  - Neutrophil count decreased [Unknown]
  - Productive cough [Unknown]
  - Decreased appetite [Unknown]
  - Dyspnoea [Unknown]
  - Neoplasm progression [Unknown]
  - COVID-19 [Recovering/Resolving]
  - Haemoglobin decreased [Unknown]
  - Oxygen saturation decreased [Unknown]
  - Death [Fatal]
  - Hypoglycaemia [Unknown]
  - Condition aggravated [Unknown]

NARRATIVE: CASE EVENT DATE: 2020
